FAERS Safety Report 24189538 (Version 2)
Quarter: 2024Q3

REPORT INFORMATION
  Report Type: Spontaneous
  Country: US (occurrence: US)
  Receive Date: 20240808
  Receipt Date: 20240902
  Transmission Date: 20241016
  Serious: Yes (Hospitalization)
  Sender: TEVA
  Company Number: US-TEVA-VS-3228063

PATIENT
  Age: 18 Month
  Sex: Male

DRUGS (4)
  1. ALBUTEROL [Suspect]
     Active Substance: ALBUTEROL
     Indication: Asthma
     Dosage: NEBULISER
     Route: 050
  2. ALBUTEROL [Suspect]
     Active Substance: ALBUTEROL
  3. ALBUTEROL [Suspect]
     Active Substance: ALBUTEROL
  4. ALBUTEROL [Suspect]
     Active Substance: ALBUTEROL

REACTIONS (4)
  - Accelerated idioventricular rhythm [Recovered/Resolved]
  - Mental status changes [Recovered/Resolved]
  - Respiratory distress [Recovered/Resolved]
  - Lethargy [Recovered/Resolved]
